FAERS Safety Report 4571707-0 (Version None)
Quarter: 2005Q1

REPORT INFORMATION
  Report Type: 
  Country: None (occurrence: None)
  Receive Date: 20050207
  Receipt Date: 20050125
  Transmission Date: 20050727
  Serious: Yes (Hospitalization)
  Sender: FDA-Public Use
  Company Number: CZ-ROCHE-393522

PATIENT
  Age: 53 Year
  Sex: Female
  Weight: 85 kg

DRUGS (5)
  1. PEG-INTERFERON ALFA 2A (RO 25-8310) [Suspect]
     Route: 058
     Dates: start: 20041208, end: 20041215
  2. RIBAVIRIN [Suspect]
     Route: 048
     Dates: start: 20041209, end: 20041217
  3. ATENOLOL [Concomitant]
     Dates: start: 19980615
  4. GLIBENCLAMIDE [Concomitant]
     Dates: start: 20040415
  5. SILYMARIN [Concomitant]
     Dates: start: 20040720

REACTIONS (2)
  - HYPERBILIRUBINAEMIA [None]
  - JAUNDICE [None]
